FAERS Safety Report 4899229-8 (Version None)
Quarter: 2006Q1

REPORT INFORMATION
  Report Type: 
  Country: None (occurrence: None)
  Receive Date: 20060202
  Receipt Date: 20060123
  Transmission Date: 20060701
  Serious: Yes (Life-Threatening, Hospitalization)
  Sender: FDA-Public Use
  Company Number: AU-ROCHE-433110

PATIENT
  Age: 14 Year
  Sex: Male
  Weight: 60 kg

DRUGS (7)
  1. CEFTRIAXONE SODIUM [Suspect]
     Route: 042
     Dates: start: 20040424, end: 20040424
  2. MIDAZOLAM HYDROCHLORIDE [Suspect]
     Dosage: STATED AS 43 MG TOTAL.
     Route: 042
     Dates: start: 20040424, end: 20040424
  3. PHENYTOIN SODIUM [Suspect]
     Dosage: STATED AS INJECTION AND INTRAVENOUS INFUSION.
     Route: 042
     Dates: start: 20040424, end: 20040424
  4. ACYCLOVIR [Suspect]
     Route: 042
     Dates: start: 20040424, end: 20040424
  5. PHENOBARBITONE [Suspect]
     Route: 042
     Dates: start: 20040424, end: 20040424
  6. MORPHINE SULFATE [Suspect]
     Indication: DRUG USE FOR UNKNOWN INDICATION
     Route: 042
     Dates: start: 20040424, end: 20040424
  7. THIOPENTONE SODIUM [Suspect]
     Indication: DRUG USE FOR UNKNOWN INDICATION
     Dosage: FORM STATED AS POWDER FOR INJECTION.
     Route: 042
     Dates: start: 20040424, end: 20040424

REACTIONS (1)
  - RESPIRATORY DEPRESSION [None]
